FAERS Safety Report 6144439-5 (Version None)
Quarter: 2009Q2

REPORT INFORMATION
  Report Type: 
  Country: None (occurrence: None)
  Receive Date: 20090406
  Receipt Date: 20090323
  Transmission Date: 20091009
  Serious: Yes (Other)
  Sender: FDA-Public Use
  Company Number: GB-ROCHE-623365

PATIENT
  Sex: Female
  Weight: 123.2 kg

DRUGS (17)
  1. ORLISTAT [Suspect]
     Indication: OBESITY
     Route: 048
     Dates: start: 20090306
  2. HYOSCINE HBR HYT [Concomitant]
     Dosage: DOSE REPORTED AS 10 MG AS AND WHEN
     Route: 048
  3. CANDESARTAN [Concomitant]
     Indication: ANGINA PECTORIS
     Route: 048
  4. ACETAMINOPHEN W/ CODEINE [Concomitant]
     Dosage: DOSE REPORTED AS 30/500 4 X DAILY
     Route: 048
  5. OMEPRAZOLE [Concomitant]
     Route: 048
  6. LEVOTHYROXINE SODIUM [Concomitant]
     Indication: HYPOTHYROIDISM
     Route: 048
  7. ISPAGHULA [Concomitant]
     Dosage: DRUG REPORTED AS: ISAGULA HUSK; INDICATION REPORTED AS BOWELS
     Route: 048
  8. ATENOLOL [Concomitant]
     Indication: BLOOD PRESSURE
     Route: 048
  9. ATORVASTATIN CALCIUM [Concomitant]
     Route: 048
  10. VITAMINS NOS [Concomitant]
     Indication: VITAMIN SUPPLEMENTATION
     Route: 048
  11. AMITRIPTYLINE HCL [Concomitant]
     Indication: SOMNOLENCE
     Route: 048
  12. LOPERAMIDE HCL [Concomitant]
     Dosage: DOSE REPORTED AS 2 MG  AS AND WHEN; INDICATION REPORTED AS BOWELS
     Route: 048
  13. FLUOXETINE [Concomitant]
     Indication: DEPRESSION
     Route: 048
  14. ASPIRIN [Concomitant]
  15. NITROGLYCERIN [Concomitant]
     Indication: ANGINA PECTORIS
     Dosage: DRUG REPORTED AS GLYCERYL NITRATE
     Route: 048
  16. BENDROFLUMETHIAZIDE [Concomitant]
     Route: 048
  17. GAVISCON [Concomitant]
     Dosage: DOSE REPORTED AS  10 ML AS AND WHEN
     Route: 048

REACTIONS (1)
  - OEDEMA PERIPHERAL [None]
